FAERS Safety Report 7464532-4 (Version None)
Quarter: 2011Q2

REPORT INFORMATION
  Report Type: 
  Country: None (occurrence: None)
  Receive Date: 20110509
  Receipt Date: 20110502
  Transmission Date: 20111010
  Serious: Yes (Hospitalization, Other)
  Sender: FDA-Public Use
  Company Number: US-ELI_LILLY_AND_COMPANY-US201007002605

PATIENT
  Sex: Female
  Weight: 98.413 kg

DRUGS (13)
  1. METFORMIN [Concomitant]
     Dosage: 500 MG, BID
     Route: 048
  2. PHENYTOIN [Concomitant]
     Dosage: 100 MG, TID
     Route: 048
  3. SPIRONOLACTONE [Concomitant]
     Dosage: 50 MG, QD
     Route: 048
  4. KEPPRA [Concomitant]
     Dosage: 500 MG, TID
     Route: 048
  5. BYETTA [Suspect]
     Dosage: 5 UG, BID
     Route: 058
     Dates: start: 20080501, end: 20080801
  6. HYDRALAZINE HCL [Concomitant]
     Dosage: 100 MG, TID
     Route: 048
  7. AMLODIPINE BESYLATE [Concomitant]
     Dosage: 10 MG, QD
     Route: 048
  8. METOLAZONE [Concomitant]
     Dosage: 5 MG, QD
     Route: 048
  9. METANX [Concomitant]
     Dosage: UNK, QD
     Route: 048
  10. LANTUS [Concomitant]
  11. DICYCLOMINE [Concomitant]
     Dosage: 20 MG, QID
     Route: 048
  12. FUROSEMIDE [Concomitant]
     Dosage: 40 MG, QD
     Route: 048
  13. HUMALIN [Concomitant]

REACTIONS (4)
  - PANCREATITIS [None]
  - GASTROENTERITIS [None]
  - OFF LABEL USE [None]
  - RENAL FAILURE ACUTE [None]
